FAERS Safety Report 18224642 (Version 1)
Quarter: 2020Q3

REPORT INFORMATION
  Report Type: Report from Study
  Country: CA (occurrence: CA)
  Receive Date: 20200903
  Receipt Date: 20200903
  Transmission Date: 20201103
  Serious: Yes (Other)
  Sender: FDA-Public Use
  Company Number: CA-ACCORD-198732

PATIENT
  Age: 56 Year
  Sex: Male
  Weight: 60 kg

DRUGS (16)
  1. ARTHROTEC [Suspect]
     Active Substance: DICLOFENAC SODIUM\MISOPROSTOL
     Indication: PRODUCT USED FOR UNKNOWN INDICATION
     Dosage: FREQUENCY: 2 EVERY 1 DAYS
     Route: 048
  2. HUMIRA [Suspect]
     Active Substance: ADALIMUMAB
     Indication: PSORIATIC ARTHROPATHY
     Dosage: DOSAGE FORM: SOLUTION SUBCUTANEOUS
     Route: 058
  3. FOLIC ACID. [Concomitant]
     Active Substance: FOLIC ACID
     Route: 048
  4. ARTHROTEC [Suspect]
     Active Substance: DICLOFENAC SODIUM\MISOPROSTOL
     Indication: PRODUCT USED FOR UNKNOWN INDICATION
     Dosage: FREQUENCY: 3 EVERY 1 DAYS
  5. BETAMETHASONE. [Concomitant]
     Active Substance: BETAMETHASONE
  6. VENTOLIN HFA [Concomitant]
     Active Substance: ALBUTEROL SULFATE
     Dosage: DOSAGE FORM: METERED?DOSE AEROSOL
  7. APO?MELOXICAM [Concomitant]
     Active Substance: MELOXICAM
     Route: 048
  8. NICOTINE. [Concomitant]
     Active Substance: NICOTINE
  9. METHOTREXATE. [Suspect]
     Active Substance: METHOTREXATE
     Indication: PRODUCT USED FOR UNKNOWN INDICATION
     Dosage: FREQUENCY: 1 EVERY 1 WEEKS
     Route: 058
  10. CYCLOCORT [Concomitant]
     Active Substance: AMCINONIDE
  11. NICOTINE. [Concomitant]
     Active Substance: NICOTINE
     Route: 062
  12. XELJANZ [Concomitant]
     Active Substance: TOFACITINIB CITRATE
     Dosage: FREQUENCY:2 EVERY 1 DAYS
  13. SIMPONI [Suspect]
     Active Substance: GOLIMUMAB
     Indication: PRODUCT USED FOR UNKNOWN INDICATION
     Dosage: FREQUENCY: 1 EVERY 1 MONTHS
     Route: 058
  14. SIMPONI [Suspect]
     Active Substance: GOLIMUMAB
     Indication: PRODUCT USED FOR UNKNOWN INDICATION
     Dosage: DOSAGE FORM: SOLUTION SUBCUTANEOUS,?FREQUENCY: 1 EVERY 1 MONTHS
     Route: 058
  15. AMCINONIDE. [Concomitant]
     Active Substance: AMCINONIDE
     Route: 061
  16. MELOXICAM. [Concomitant]
     Active Substance: MELOXICAM

REACTIONS (20)
  - Atelectasis [Unknown]
  - Bone erosion [Unknown]
  - Fear of injection [Unknown]
  - Hypertension [Unknown]
  - Peptic ulcer [Unknown]
  - Psoriasis [Unknown]
  - Psoriatic arthropathy [Unknown]
  - Swelling [Unknown]
  - Grip strength decreased [Unknown]
  - Musculoskeletal stiffness [Unknown]
  - Joint instability [Unknown]
  - Nail disorder [Unknown]
  - Tuberculosis [Unknown]
  - Arthralgia [Unknown]
  - Muscular weakness [Unknown]
  - Pain in extremity [Unknown]
  - Pulmonary fibrosis [Unknown]
  - Arthropathy [Unknown]
  - Finger deformity [Unknown]
  - Skin disorder [Unknown]
